FAERS Safety Report 12275689 (Version 1)
Quarter: 2016Q2

REPORT INFORMATION
  Report Type: Spontaneous
  Country: GB (occurrence: GB)
  Receive Date: 20160418
  Receipt Date: 20160418
  Transmission Date: 20160815
  Serious: Yes (Death)
  Sender: FDA-Public Use
  Company Number: GB-ROCHE-1742753

PATIENT
  Age: 83 Year
  Sex: Male

DRUGS (7)
  1. BISOPROLOL [Concomitant]
     Active Substance: BISOPROLOL
  2. WARFARIN [Concomitant]
     Active Substance: WARFARIN
  3. GLICLAZIDE [Concomitant]
     Active Substance: GLICLAZIDE
  4. PRAVASTATIN [Concomitant]
     Active Substance: PRAVASTATIN\PRAVASTATIN SODIUM
  5. CANDESARTANUM [Concomitant]
  6. NICORANDIL [Concomitant]
     Active Substance: NICORANDIL
  7. LUCENTIS [Suspect]
     Active Substance: RANIBIZUMAB
     Indication: DIABETIC RETINAL OEDEMA
     Dosage: IN RIGHT EYE?SUBSEQUENT DOSES ON OCT/2014 (LEFT EYE), NOV/2014 (RIGHT EYE), JAN/2015 (LEFT EYE)
     Route: 050
     Dates: start: 201310

REACTIONS (1)
  - Death [Fatal]

NARRATIVE: CASE EVENT DATE: 20150925
